FAERS Safety Report 5767363-6 (Version None)
Quarter: 2008Q2

REPORT INFORMATION
  Report Type: 
  Country: None (occurrence: None)
  Receive Date: 20080612
  Receipt Date: 20080604
  Transmission Date: 20081010
  Serious: Yes (Other)
  Sender: FDA-Public Use
  Company Number: A0732530A

PATIENT
  Sex: Female

DRUGS (2)
  1. TREXIMET [Suspect]
     Dosage: 1TAB SINGLE DOSE
     Route: 048
     Dates: start: 20080603, end: 20080603
  2. TORADOL [Concomitant]
     Indication: MIGRAINE
     Dates: start: 20080602, end: 20080602

REACTIONS (6)
  - DIZZINESS [None]
  - GAIT DISTURBANCE [None]
  - HEADACHE [None]
  - HEART RATE INCREASED [None]
  - HYPOAESTHESIA [None]
  - NAUSEA [None]
